FAERS Safety Report 4750951-3 (Version None)
Quarter: 2005Q3

REPORT INFORMATION
  Report Type: 
  Country: None (occurrence: None)
  Receive Date: 20050822
  Receipt Date: 20040331
  Transmission Date: 20060218
  Serious: Yes (Other)
  Sender: FDA-Public Use
  Company Number: US-2005-014174

PATIENT
  Age: 22 Year
  Sex: Female
  Weight: 84 kg

DRUGS (6)
  1. MAGNEVIST INJECTION (GADOPENTETATE DIMEGLUMINE) INJECTION [Suspect]
     Indication: NUCLEAR MAGNETIC RESONANCE IMAGING
     Dosage: SEE IMAGE
     Route: 042
     Dates: start: 20040302, end: 20040302
  2. MAGNEVIST INJECTION (GADOPENTETATE DIMEGLUMINE) INJECTION [Suspect]
     Indication: NUCLEAR MAGNETIC RESONANCE IMAGING
     Dosage: SEE IMAGE
     Route: 042
     Dates: start: 20040303, end: 20040303
  3. MAGNEVIST INJECTION (GADOPENTETATE DIMEGLUMINE) INJECTION [Suspect]
     Indication: NUCLEAR MAGNETIC RESONANCE IMAGING
     Dosage: SEE IMAGE
     Route: 042
     Dates: start: 20040331, end: 20040331
  4. MAGNEVIST INJECTION (GADOPENTETATE DIMEGLUMINE) INJECTION [Suspect]
     Indication: NUCLEAR MAGNETIC RESONANCE IMAGING
     Dosage: SEE IMAGE
     Route: 042
     Dates: start: 20040331, end: 20040331
  5. SODIUM CHLORIDE [Suspect]
     Indication: NUCLEAR MAGNETIC RESONANCE IMAGING
     Dosage: 0.9% NACL INFUSION, INTRAVENOUS
     Route: 042
     Dates: start: 20040331, end: 20040331
  6. COPAXONE [Suspect]
     Indication: MULTIPLE SCLEROSIS
     Dosage: 20 MG, 1X/DAY, SUBCUTANEOUS
     Route: 058
     Dates: start: 20040304

REACTIONS (12)
  - CONDITION AGGRAVATED [None]
  - DIZZINESS [None]
  - HYPOAESTHESIA [None]
  - INFUSION SITE ERYTHEMA [None]
  - INFUSION SITE PAIN [None]
  - INJECTION SITE EXTRAVASATION [None]
  - INJECTION SITE HAEMORRHAGE [None]
  - INJECTION SITE SWELLING [None]
  - MEDIAN NERVE INJURY [None]
  - PARAESTHESIA [None]
  - PERIPHERAL COLDNESS [None]
  - SKIN DISCOLOURATION [None]
